FAERS Safety Report 9254467 (Version 2)
Quarter: 2013Q4

REPORT INFORMATION
  Report Type: Spontaneous
  Country: US (occurrence: None)
  Receive Date: 20130422
  Receipt Date: 20131226
  Transmission Date: 20140711
  Serious: Yes (Disabling, Other)
  Sender: FDA-Public Use
  Company Number: 1304-508

PATIENT
  Sex: 0

DRUGS (1)
  1. EYLEA [Suspect]

REACTIONS (3)
  - Endophthalmitis [None]
  - Visual acuity reduced [None]
  - Eye pain [None]
